FAERS Safety Report 14354016 (Version 1)
Quarter: 2018Q1

REPORT INFORMATION
  Report Type: Spontaneous
  Country: CN (occurrence: CN)
  Receive Date: 20180105
  Receipt Date: 20180105
  Transmission Date: 20180509
  Serious: Yes (Other)
  Sender: FDA-Public Use
  Company Number: CN-CIPLA LTD.-2017CN29592

PATIENT

DRUGS (5)
  1. BENZHEXOL [Concomitant]
     Active Substance: TRIHEXYPHENIDYL
     Dosage: 2 MG, TID
     Route: 065
  2. LAMOTRIGINE. [Suspect]
     Active Substance: LAMOTRIGINE
     Indication: EPILEPSY
     Dosage: 100 MG, QD
     Route: 065
  3. SODIUM VALPROATE [Suspect]
     Active Substance: VALPROATE SODIUM
     Dosage: 500 MG, BID
     Route: 065
  4. BENZHEXOL [Concomitant]
     Active Substance: TRIHEXYPHENIDYL
     Dosage: UNKNOWN
     Route: 065
  5. SODIUM VALPROATE [Suspect]
     Active Substance: VALPROATE SODIUM
     Indication: EPILEPSY
     Dosage: 1000 MG, BID, SUSTAINED RELEASE TABLET
     Route: 065

REACTIONS (2)
  - Tremor [Recovering/Resolving]
  - Anxiety [Recovering/Resolving]
